FAERS Safety Report 6471115-1 (Version None)
Quarter: 2009Q4

REPORT INFORMATION
  Report Type: 
  Country: None (occurrence: None)
  Receive Date: 20091203
  Receipt Date: 20091130
  Transmission Date: 20100525
  Serious: Yes (Death, Hospitalization, Other)
  Sender: FDA-Public Use
  Company Number: PHHY2009BR52738

PATIENT
  Sex: Female

DRUGS (9)
  1. DIOVAN [Suspect]
     Indication: HYPERTENSION
     Dosage: 1 DF (320 MG) IN THE MORNING
     Route: 048
     Dates: end: 20091120
  2. CITALOR [Concomitant]
     Indication: BLOOD CHOLESTEROL INCREASED
     Dosage: ONE TABLET DAILY
     Route: 048
     Dates: end: 20091120
  3. MONOCORDIL [Concomitant]
     Indication: ANGINA PECTORIS
     Dosage: 1 DF, BID
     Route: 048
     Dates: end: 20091120
  4. MONOCORDIL [Concomitant]
     Indication: HYPERTENSION
  5. CONCOR [Concomitant]
     Indication: HYPERTENSION
     Dosage: ONE TABLET DAILY
     Route: 048
     Dates: end: 20091120
  6. CONCOR [Concomitant]
     Indication: ARRHYTHMIA
  7. AMARYL [Concomitant]
     Indication: DIABETES MELLITUS
     Dosage: ONE TABLET DAILY
     Route: 048
     Dates: end: 20091120
  8. METFORMIN HCL [Concomitant]
     Indication: DIABETES MELLITUS
     Dosage: ONE TABLET AT NIGHT
     Route: 048
     Dates: end: 20091120
  9. MEMANTINE HCL [Concomitant]
     Indication: MEMORY IMPAIRMENT
     Dosage: 2 TABLETS DAILY
     Route: 048
     Dates: end: 20091120

REACTIONS (7)
  - CARDIAC FAILURE [None]
  - DIARRHOEA [None]
  - DYSPNOEA [None]
  - MULTI-ORGAN FAILURE [None]
  - PNEUMONIA [None]
  - SEPSIS [None]
  - VOMITING [None]
